FAERS Safety Report 15495194 (Version 2)
Quarter: 2018Q4

REPORT INFORMATION
  Report Type: Spontaneous
  Country: BE (occurrence: BE)
  Receive Date: 20181012
  Receipt Date: 20181120
  Transmission Date: 20190205
  Serious: Yes (Hospitalization)
  Sender: FDA-Public Use
  Company Number: PHHY2018BE121154

PATIENT
  Age: 69 Year
  Sex: Female
  Weight: 67 kg

DRUGS (4)
  1. PEGYLATED LIPOSOMAL DOXORUBICIN [Suspect]
     Active Substance: DOXORUBICIN
     Indication: PRODUCT USED FOR UNKNOWN INDICATION
     Dosage: 30 MG/M2, CYCLIC
     Route: 042
     Dates: start: 20180903, end: 20180903
  2. FARLETUZUMAB [Suspect]
     Active Substance: FARLETUZUMAB
     Indication: OVARIAN CANCER
     Dosage: 10 MG/KG, CYCLIC
     Route: 042
     Dates: start: 20180903, end: 20180910
  3. CARBOPLATIN. [Suspect]
     Active Substance: CARBOPLATIN
     Indication: OVARIAN CANCER
     Dosage: UNK UNK, CYCLIC (5 AUC)
     Route: 042
     Dates: start: 20180903, end: 20180903
  4. CAELYX [Suspect]
     Active Substance: DOXORUBICIN HYDROCHLORIDE
     Indication: PRODUCT USED FOR UNKNOWN INDICATION
     Dosage: 30 MG/KG, CYCLIC
     Route: 042
     Dates: start: 20180903, end: 20180903

REACTIONS (1)
  - Febrile neutropenia [Unknown]

NARRATIVE: CASE EVENT DATE: 20180917
